FAERS Safety Report 6291423-7 (Version None)
Quarter: 2009Q3

REPORT INFORMATION
  Report Type: 
  Country: None (occurrence: None)
  Receive Date: 20090729
  Receipt Date: 20090729
  Transmission Date: 20100115
  Serious: Yes (Other)
  Sender: FDA-Public Use
  Company Number: None

PATIENT
  Age: 11 Year
  Sex: Male
  Weight: 40.8237 kg

DRUGS (1)
  1. TAMIFLU [Suspect]
     Indication: INFLUENZA
     Dates: start: 20090721, end: 20090726

REACTIONS (5)
  - CRYING [None]
  - HALLUCINATION [None]
  - MORBID THOUGHTS [None]
  - NIGHTMARE [None]
  - SCREAMING [None]
